FAERS Safety Report 12582564 (Version 1)
Quarter: 2016Q3

REPORT INFORMATION
  Report Type: Report from Study
  Country: US (occurrence: US)
  Receive Date: 20160722
  Receipt Date: 20160722
  Transmission Date: 20161109
  Serious: Yes (Hospitalization, Other)
  Sender: FDA-Public Use
  Company Number: PHHO2012US009818

PATIENT
  Age: 47 Year
  Sex: Male
  Weight: 82.5 kg

DRUGS (2)
  1. ODOMZO [Suspect]
     Active Substance: SONIDEGIB
     Dosage: 400 MG, UNK
     Route: 048
     Dates: end: 20120825
  2. ODOMZO [Suspect]
     Active Substance: SONIDEGIB
     Indication: NON-SMALL CELL LUNG CANCER
     Dosage: 200 MG, UNK
     Route: 048
     Dates: start: 20120601, end: 20120706

REACTIONS (5)
  - Acute kidney injury [Recovering/Resolving]
  - Colitis [Recovering/Resolving]
  - Seizure [Not Recovered/Not Resolved]
  - Chills [Recovered/Resolved]
  - Diverticulitis [Unknown]

NARRATIVE: CASE EVENT DATE: 20120627
